FAERS Safety Report 8816155 (Version 3)
Quarter: 2013Q3

REPORT INFORMATION
  Report Type: Spontaneous
  Country: US (occurrence: US)
  Receive Date: 20120929
  Receipt Date: 20130809
  Transmission Date: 20140515
  Serious: No
  Sender: FDA-Public Use
  Company Number: US-009507513-1209USA010071

PATIENT
  Age: 50 Year
  Sex: Female
  Weight: 68.93 kg

DRUGS (1)
  1. VICTRELIS [Suspect]
     Indication: HEPATITIS C
     Dosage: 4 CAPSULES (800 MG), THREE TIMES A DAY EVERY 7-9 HOURS
     Route: 048
     Dates: start: 20110929, end: 20120201

REACTIONS (1)
  - Anaemia [Recovered/Resolved]
